FAERS Safety Report 6308752-0 (Version None)
Quarter: 2009Q3

REPORT INFORMATION
  Report Type: 
  Country: None (occurrence: None)
  Receive Date: 20090813
  Receipt Date: 20080501
  Transmission Date: 20100115
  Serious: Yes (Hospitalization)
  Sender: FDA-Public Use
  Company Number: US-ALLERGAN-0803140US

PATIENT
  Sex: Female

DRUGS (6)
  1. COMBIGAN [Suspect]
     Indication: GLAUCOMA
     Dosage: 1 GTT, BID
     Route: 047
     Dates: start: 20080201, end: 20080317
  2. AVAPRO [Concomitant]
     Indication: HYPERTENSION
     Dosage: 225 MG, QD
     Route: 048
  3. AVAPRO [Concomitant]
     Dosage: 150 MG, BID
     Route: 048
  4. COSOPT [Concomitant]
     Indication: GLAUCOMA
     Dosage: UNK, BID
     Route: 047
  5. XALATAN [Concomitant]
     Indication: GLAUCOMA
     Dosage: UNK, QHS
     Route: 047
  6. ALPHAGAN P [Concomitant]
     Indication: GLAUCOMA
     Dosage: UNK, BID
     Route: 047

REACTIONS (3)
  - DIZZINESS [None]
  - HYPERTENSION [None]
  - INSOMNIA [None]
